FAERS Safety Report 16868488 (Version 11)
Quarter: 2020Q2

REPORT INFORMATION
  Report Type: Spontaneous
  Country: US (occurrence: US)
  Receive Date: 20190930
  Receipt Date: 20200605
  Transmission Date: 20200713
  Serious: Yes (Other)
  Sender: FDA-Public Use
  Company Number: US-INCYTE CORPORATION-2019IN009709

PATIENT

DRUGS (15)
  1. JAKAFI [Suspect]
     Active Substance: RUXOLITINIB
     Indication: MYELOPROLIFERATIVE NEOPLASM
     Dosage: 15 MILLIGRAM, BID
     Route: 048
     Dates: start: 20170327
  2. TERBINAFINE. [Concomitant]
     Active Substance: TERBINAFINE
     Indication: PRODUCT USED FOR UNKNOWN INDICATION
     Route: 065
  3. JAKAFI [Suspect]
     Active Substance: RUXOLITINIB
     Dosage: 15 MILLIGRAM, BID
     Route: 048
     Dates: start: 20170327
  4. LIPITOR [Concomitant]
     Active Substance: ATORVASTATIN CALCIUM
     Indication: PRODUCT USED FOR UNKNOWN INDICATION
     Route: 065
  5. OXYCODONE [Concomitant]
     Active Substance: OXYCODONE
     Indication: PRODUCT USED FOR UNKNOWN INDICATION
     Route: 065
  6. CLARITIN [Concomitant]
     Active Substance: LORATADINE
     Indication: PRODUCT USED FOR UNKNOWN INDICATION
     Route: 065
  7. AMOXICILLIN. [Concomitant]
     Active Substance: AMOXICILLIN
     Indication: PRODUCT USED FOR UNKNOWN INDICATION
     Route: 065
  8. ALLOPURINOL. [Concomitant]
     Active Substance: ALLOPURINOL
     Indication: PRODUCT USED FOR UNKNOWN INDICATION
     Route: 065
  9. FLOMAX [Concomitant]
     Active Substance: TAMSULOSIN HYDROCHLORIDE
     Indication: PRODUCT USED FOR UNKNOWN INDICATION
     Route: 065
  10. LYRICA [Concomitant]
     Active Substance: PREGABALIN
     Indication: PRODUCT USED FOR UNKNOWN INDICATION
     Route: 065
  11. JAKAFI [Suspect]
     Active Substance: RUXOLITINIB
     Dosage: 15 MILLIGRAM, BID
     Route: 048
     Dates: start: 20170301
  12. ADVIL (MEFENAMIC ACID) [Concomitant]
     Active Substance: MEFENAMIC ACID
     Indication: PRODUCT USED FOR UNKNOWN INDICATION
     Route: 065
  13. JAKAFI [Suspect]
     Active Substance: RUXOLITINIB
     Indication: POST HERPETIC NEURALGIA
     Dosage: 15 MILLIGRAM, BID
     Route: 048
     Dates: start: 20170327
  14. JAKAFI [Suspect]
     Active Substance: RUXOLITINIB
     Dosage: 15 MILLIGRAM, BID
     Route: 048
  15. VALACYCLOVIR [Concomitant]
     Active Substance: VALACYCLOVIR HYDROCHLORIDE
     Indication: PRODUCT USED FOR UNKNOWN INDICATION
     Route: 065

REACTIONS (25)
  - Neuropathy peripheral [Not Recovered/Not Resolved]
  - Haemorrhoids [Unknown]
  - Tension [Unknown]
  - Back injury [Recovering/Resolving]
  - Dental caries [Unknown]
  - Constipation [Recovering/Resolving]
  - Nerve injury [Recovering/Resolving]
  - Pain in extremity [Unknown]
  - Post herpetic neuralgia [Not Recovered/Not Resolved]
  - Toothache [Unknown]
  - Herpes zoster [Unknown]
  - Weight increased [Unknown]
  - Loss of consciousness [Unknown]
  - Hypersensitivity [Unknown]
  - Mass [Unknown]
  - Fall [Unknown]
  - Pyrexia [Unknown]
  - Off label use [Unknown]
  - Blindness transient [Recovered/Resolved]
  - Calcinosis [Unknown]
  - Tooth fracture [Unknown]
  - Neck injury [Recovering/Resolving]
  - Ophthalmic herpes zoster [Unknown]
  - Rash macular [Unknown]
  - Teeth brittle [Unknown]

NARRATIVE: CASE EVENT DATE: 20170301
